FAERS Safety Report 20213817 (Version 1)
Quarter: 2021Q4

REPORT INFORMATION
  Report Type: Spontaneous
  Country: US (occurrence: None)
  Receive Date: 20211221
  Receipt Date: 20211221
  Transmission Date: 20220303
  Serious: Yes (Other)
  Sender: FDA-Public Use
  Company Number: None

PATIENT
  Age: 60 Year
  Sex: Female
  Weight: 80.8 kg

DRUGS (4)
  1. IRINOTECAN [Suspect]
     Active Substance: IRINOTECAN
     Indication: Pancreatic carcinoma
     Dosage: FREQUENCY : ONCE;?
     Route: 041
  2. IRINOTECAN [Suspect]
     Active Substance: IRINOTECAN
     Indication: Pancreatic carcinoma
     Dosage: FREQUENCY : ONCE;?
     Route: 041
  3. ATROPINE [Concomitant]
     Active Substance: ATROPINE
     Dates: start: 20211220, end: 20211220
  4. LEUCOVORIN [Concomitant]
     Active Substance: LEUCOVORIN
     Dates: start: 20211220, end: 20211220

REACTIONS (2)
  - Anxiety [None]
  - Blood pressure increased [None]

NARRATIVE: CASE EVENT DATE: 20211220
